FAERS Safety Report 25302486 (Version 1)
Quarter: 2025Q2

REPORT INFORMATION
  Report Type: Spontaneous
  Country: US (occurrence: US)
  Receive Date: 20250512
  Receipt Date: 20250512
  Transmission Date: 20250717
  Serious: No
  Sender: BIOGEN
  Company Number: US-BIOGEN-2025BI01300348

PATIENT
  Sex: Female

DRUGS (8)
  1. VUMERITY [Suspect]
     Active Substance: DIROXIMEL FUMARATE
     Indication: Multiple sclerosis
     Dosage: STARTING DOSE
     Route: 050
     Dates: start: 20211209
  2. VUMERITY [Suspect]
     Active Substance: DIROXIMEL FUMARATE
     Dosage: MAINTENANCE DOSE
     Route: 050
  3. BACLOFEN [Concomitant]
     Active Substance: BACLOFEN
     Route: 050
  4. LISINOPRIL [Concomitant]
     Active Substance: LISINOPRIL
     Route: 050
  5. VITAMIN D3 [Concomitant]
     Active Substance: CHOLECALCIFEROL
     Route: 050
  6. glucosamine chondroitin calcium [Concomitant]
     Route: 050
  7. COLLAGEN [Concomitant]
     Active Substance: COLLAGEN
     Route: 050
  8. VITAMIN B12 [Concomitant]
     Active Substance: CYANOCOBALAMIN
     Route: 050

REACTIONS (2)
  - Product dose omission in error [Unknown]
  - Cyst [Not Recovered/Not Resolved]
